FAERS Safety Report 9405378 (Version 1)
Quarter: 2013Q3

REPORT INFORMATION
  Report Type: Spontaneous
  Country: PH (occurrence: PH)
  Receive Date: 20130717
  Receipt Date: 20130717
  Transmission Date: 20140515
  Serious: Yes (Death, Other)
  Sender: FDA-Public Use
  Company Number: PH-009507513-1307PHL006152

PATIENT
  Age: 70 Year
  Sex: Female

DRUGS (1)
  1. COZAAR [Suspect]
     Dosage: UNK

REACTIONS (1)
  - Renal failure [Fatal]
